FAERS Safety Report 12092939 (Version 1)
Quarter: 2016Q1

REPORT INFORMATION
  Report Type: Spontaneous
  Country: US (occurrence: None)
  Receive Date: 20160218
  Receipt Date: 20160218
  Transmission Date: 20160526
  Serious: No
  Sender: FDA-Public Use
  Company Number: None

PATIENT
  Sex: Female

DRUGS (2)
  1. HYDROXYZINE HCL [Suspect]
     Active Substance: HYDROXYZINE HYDROCHLORIDE
     Dosage: BOTTLE
     Route: 048
  2. HYDRALAZINE HCL [Suspect]
     Active Substance: HYDRALAZINE HYDROCHLORIDE
     Dosage: BOTTLE
     Route: 048

REACTIONS (3)
  - Wrong drug administered [None]
  - Product label on wrong product [None]
  - Drug dispensing error [None]

NARRATIVE: CASE EVENT DATE: 2015
